FAERS Safety Report 5932903-0 (Version None)
Quarter: 2008Q4

REPORT INFORMATION
  Report Type: 
  Country: None (occurrence: None)
  Receive Date: 20081023
  Receipt Date: 20081010
  Transmission Date: 20090506
  Serious: Yes (Hospitalization)
  Sender: FDA-Public Use
  Company Number: 2008BI006714

PATIENT
  Age: 47 Year
  Sex: Female

DRUGS (9)
  1. AVONEX [Suspect]
     Indication: RELAPSING-REMITTING MULTIPLE SCLEROSIS
     Dosage: 15 UG; QW; IM, 30 UG; QW; IM
     Route: 030
     Dates: start: 20071206, end: 20071206
  2. AVONEX [Suspect]
     Indication: RELAPSING-REMITTING MULTIPLE SCLEROSIS
     Dosage: 15 UG; QW; IM, 30 UG; QW; IM
     Route: 030
     Dates: start: 20071213, end: 20080208
  3. ONEALFA [Concomitant]
  4. LIPITOR [Concomitant]
  5. DEPAS [Concomitant]
  6. CYANOCOBALAMIN [Concomitant]
  7. VESICARE [Concomitant]
  8. PONSTEL [Concomitant]
  9. HALCION [Concomitant]

REACTIONS (7)
  - BACK PAIN [None]
  - BLOOD GLUCOSE INCREASED [None]
  - BLOOD UREA INCREASED [None]
  - DRUG INEFFECTIVE [None]
  - INJECTION SITE REACTION [None]
  - MYALGIA [None]
  - WHITE BLOOD CELL COUNT INCREASED [None]
